FAERS Safety Report 21917073 (Version 1)
Quarter: 2023Q1

REPORT INFORMATION
  Report Type: Spontaneous
  Country: BR (occurrence: BR)
  Receive Date: 20230126
  Receipt Date: 20230126
  Transmission Date: 20230417
  Serious: Yes (Other)
  Sender: FDA-Public Use
  Company Number: BR-009507513-2301BRA008928

PATIENT
  Age: 75 Year
  Sex: Female

DRUGS (4)
  1. JANUMET [Suspect]
     Active Substance: METFORMIN HYDROCHLORIDE\SITAGLIPTIN PHOSPHATE
     Dosage: 2 TABLETS DAILY (ONE BY MORNING AND THE OTHER AT NIGHT), STRENGTH 50/1000MG
     Route: 048
     Dates: start: 2013
  2. COVID-19 VACCINE NOS [Suspect]
     Active Substance: COVID-19 VACCINE NOS
     Indication: Prophylaxis
  3. INSULIN NOS [Concomitant]
     Active Substance: INSULIN NOS
     Dosage: IN THE MORNING AND AT NIGHT
     Dates: start: 2023
  4. GLICLAZIDE [Concomitant]
     Active Substance: GLICLAZIDE
     Dosage: ONE TABLET IN THE MORNING
     Route: 048
     Dates: start: 2013

REACTIONS (8)
  - Diabetes mellitus inadequate control [Unknown]
  - COVID-19 [Unknown]
  - Vaccination failure [Unknown]
  - Emotional disorder [Unknown]
  - Blood glucose increased [Unknown]
  - Malaise [Unknown]
  - Hyperhidrosis [Unknown]
  - Product selection error [Unknown]

NARRATIVE: CASE EVENT DATE: 20220101
